FAERS Safety Report 14663321 (Version 1)
Quarter: 2018Q1

REPORT INFORMATION
  Report Type: Spontaneous
  Country: US (occurrence: US)
  Receive Date: 20180321
  Receipt Date: 20180321
  Transmission Date: 20180509
  Serious: Yes (Other)
  Sender: FDA-Public Use
  Company Number: PHEH2018US010027

PATIENT
  Sex: Female
  Weight: 72.56 kg

DRUGS (1)
  1. NEOMYCIN SANDOZ [Suspect]
     Active Substance: NEOMYCIN
     Indication: EAR INFECTION
     Dosage: 3 DRP, BID
     Route: 065

REACTIONS (1)
  - Deafness [Not Recovered/Not Resolved]
